FAERS Safety Report 5877433-X (Version None)
Quarter: 2008Q3

REPORT INFORMATION
  Report Type: 
  Country: None (occurrence: None)
  Receive Date: 20080911
  Receipt Date: 20080909
  Transmission Date: 20090109
  Serious: Yes (Other)
  Sender: FDA-Public Use
  Company Number: US-SP-2008-02843

PATIENT
  Age: 19 Year
  Sex: Female

DRUGS (3)
  1. TUBERSOL [Suspect]
     Indication: TUBERCULIN TEST
     Route: 065
     Dates: start: 20080908
  2. TUBERSOL [Suspect]
     Route: 065
     Dates: start: 20080908
  3. PROVENTIL GENTLEHALER [Concomitant]

REACTIONS (4)
  - DYSPNOEA [None]
  - MEDICATION ERROR [None]
  - NASAL CONGESTION [None]
  - WHEEZING [None]
